FAERS Safety Report 7105950-3 (Version None)
Quarter: 2010Q4

REPORT INFORMATION
  Report Type: 
  Country: None (occurrence: None)
  Receive Date: 20101110
  Receipt Date: 20101022
  Transmission Date: 20110411
  Serious: Yes (Other)
  Sender: FDA-Public Use
  Company Number: IDA-00447

PATIENT

DRUGS (2)
  1. PROPRANOLOL [Suspect]
     Indication: HAEMANGIOMA
     Dosage: 2 MG DAILY
  2. CORTICOSTEROIDS /OLD DOSE/ (CORTICOSTEROIDS /OLD CODE/) [Concomitant]

REACTIONS (2)
  - ASTHMA [None]
  - LARYNGEAL OBSTRUCTION [None]
